FAERS Safety Report 19810567 (Version 1)
Quarter: 2021Q3

REPORT INFORMATION
  Report Type: Spontaneous
  Country: ES (occurrence: ES)
  Receive Date: 20210909
  Receipt Date: 20210909
  Transmission Date: 20211014
  Serious: Yes (Death, Hospitalization, Other)
  Sender: FDA-Public Use
  Company Number: ES-ACCORD-237991

PATIENT
  Age: 76 Year
  Sex: Male

DRUGS (4)
  1. HALOPERIDOL. [Interacting]
     Active Substance: HALOPERIDOL
     Indication: ACUTE PSYCHOSIS
     Route: 048
     Dates: start: 20210331, end: 20210407
  2. HALOPERIDOL. [Concomitant]
     Active Substance: HALOPERIDOL
     Indication: ACUTE PSYCHOSIS
     Route: 048
     Dates: start: 20210226, end: 20210331
  3. LITHIUM. [Interacting]
     Active Substance: LITHIUM
     Indication: ACUTE PSYCHOSIS
     Route: 048
     Dates: start: 20210324, end: 20210407
  4. QUETIAPINE. [Suspect]
     Active Substance: QUETIAPINE
     Indication: ACUTE PSYCHOSIS
     Route: 048
     Dates: start: 20210301, end: 20210407

REACTIONS (2)
  - Neuroleptic malignant syndrome [Fatal]
  - Drug interaction [Unknown]

NARRATIVE: CASE EVENT DATE: 20210408
